FAERS Safety Report 5383407-8 (Version None)
Quarter: 2007Q3

REPORT INFORMATION
  Report Type: 
  Country: None (occurrence: None)
  Receive Date: 20070705
  Receipt Date: 20070621
  Transmission Date: 20080115
  Serious: No
  Sender: FDA-Public Use
  Company Number: 2007SP012149

PATIENT
  Age: 63 Year
  Sex: Male

DRUGS (2)
  1. CLARITIN [Suspect]
     Indication: ECZEMA
     Dosage: SEE IMAGE
     Route: 048
     Dates: start: 20070509, end: 20070511
  2. CLARITIN [Suspect]
     Indication: ECZEMA
     Dosage: SEE IMAGE
     Route: 048
     Dates: start: 20070513, end: 20070516

REACTIONS (2)
  - FISTULA [None]
  - HAEMORRHOIDAL HAEMORRHAGE [None]
